FAERS Safety Report 5502148-7 (Version None)
Quarter: 2007Q4

REPORT INFORMATION
  Report Type: 
  Country: None (occurrence: None)
  Receive Date: 20071030
  Receipt Date: 20071025
  Transmission Date: 20080405
  Serious: Yes (Death)
  Sender: FDA-Public Use
  Company Number: JP-JNJFOC-20071006738

PATIENT
  Age: 65 Year
  Sex: Male
  Weight: 51 kg

DRUGS (7)
  1. ITRIZOLE [Suspect]
     Indication: PROPHYLAXIS
     Route: 048
  2. OZEX [Concomitant]
     Indication: PROPHYLAXIS
     Route: 048
  3. MAXIPIME [Concomitant]
     Indication: PROPHYLAXIS
     Route: 042
  4. CELLCEPT [Concomitant]
     Route: 048
  5. PROGRAF [Concomitant]
     Route: 042
  6. GRAN [Concomitant]
     Route: 042
  7. FRAGMIN [Concomitant]
     Route: 042

REACTIONS (4)
  - ACUTE MYELOID LEUKAEMIA [None]
  - BLOOD LACTATE DEHYDROGENASE INCREASED [None]
  - CHEST X-RAY ABNORMAL [None]
  - HYPERBILIRUBINAEMIA [None]
